FAERS Safety Report 23438412 (Version 1)
Quarter: 2024Q1

REPORT INFORMATION
  Report Type: Spontaneous
  Country: US (occurrence: None)
  Receive Date: 20240124
  Receipt Date: 20240124
  Transmission Date: 20240410
  Serious: Yes (Other)
  Sender: FDA-Public Use
  Company Number: None

PATIENT
  Sex: Female

DRUGS (9)
  1. CAPECITABINE [Suspect]
     Active Substance: CAPECITABINE
     Indication: Breast cancer female
     Route: 048
     Dates: start: 20191203
  2. CAPECITABINE [Suspect]
     Active Substance: CAPECITABINE
  3. ARIMIDEX TAB 1MG [Concomitant]
  4. BUPROPION TAB 150MG SR [Concomitant]
  5. METFORMIN TAB 500MG [Concomitant]
  6. MONTELUKAST TAB 10MG [Concomitant]
  7. XANAX TAB 0.25MG [Concomitant]
  8. XARELTO TAB 10MG [Concomitant]
  9. ZYRTEC ALLGY TAB 10MG [Concomitant]

REACTIONS (1)
  - Pancreatic carcinoma [None]
